FAERS Safety Report 16250428 (Version 3)
Quarter: 2019Q2

REPORT INFORMATION
  Report Type: Spontaneous
  Country: PL (occurrence: PL)
  Receive Date: 20190429
  Receipt Date: 20190515
  Transmission Date: 20190711
  Serious: Yes (Other)
  Sender: FDA-Public Use
  Company Number: PL-PFIZER INC-2019177652

PATIENT
  Age: 64 Year
  Sex: Male

DRUGS (10)
  1. CISPLATIN. [Suspect]
     Active Substance: CISPLATIN
     Indication: PRIMARY CARDIAC LYMPHOMA
     Dosage: UNK, CYCLIC (TWO CYCLES OF SECOND-LINE CHEMOTHERAPY)
     Dates: start: 2012
  2. HEPARIN [Concomitant]
     Active Substance: HEPARIN SODIUM
     Indication: ATRIAL FIBRILLATION
     Dosage: UNK
     Dates: start: 2012
  3. DEXAMETHASONE. [Suspect]
     Active Substance: DEXAMETHASONE
     Indication: PRIMARY CARDIAC LYMPHOMA
     Dosage: UNK, CYCLIC (WO CYCLES OF SECOND-LINE CHEMOTHERAPY)
     Dates: start: 2012
  4. GRANULOCYTE COLONY STIMULATING FACTOR [Concomitant]
     Active Substance: GRANULOCYTE COLONY-STIMULATING FACTOR NOS
     Indication: PROPHYLAXIS
     Dosage: UNK (PRIMARY) (PROPHYLAXIS)
     Dates: start: 2012
  5. DOXORUBICIN [Concomitant]
     Active Substance: DOXORUBICIN
     Indication: PRIMARY CARDIAC LYMPHOMA
     Dosage: UNK, CYCLIC (5 CYCLES)
     Dates: start: 2012
  6. VINCRISTINE SULFATE. [Concomitant]
     Active Substance: VINCRISTINE SULFATE
     Indication: PRIMARY CARDIAC LYMPHOMA
     Dosage: UNK, CYCLIC (5 CYCLES)
     Dates: start: 2012
  7. PREDNISOLONE. [Concomitant]
     Active Substance: PREDNISOLONE
     Indication: PRIMARY CARDIAC LYMPHOMA
     Dosage: UNK, CYCLIC (5 CYCLES)
     Dates: start: 2012
  8. CYTARABINE. [Suspect]
     Active Substance: CYTARABINE
     Indication: PRIMARY CARDIAC LYMPHOMA
     Dosage: UNK, CYCLIC (TWO CYCLES OF SECOND-LINE CHEMOTHERAPY)
     Dates: start: 2012
  9. CYCLOPHOSPHAMIDE. [Concomitant]
     Active Substance: CYCLOPHOSPHAMIDE
     Indication: PRIMARY CARDIAC LYMPHOMA
     Dosage: UNK, CYCLIC (5 CYCLES)
     Dates: start: 2012
  10. RITUXIMAB. [Concomitant]
     Active Substance: RITUXIMAB
     Indication: PRIMARY CARDIAC LYMPHOMA
     Dosage: UNK, CYCLIC (5 CYCLES)
     Dates: start: 2012

REACTIONS (3)
  - Neoplasm progression [Recovered/Resolved]
  - Febrile neutropenia [Unknown]
  - Renal failure [Unknown]

NARRATIVE: CASE EVENT DATE: 2012
